FAERS Safety Report 7187087-0 (Version None)
Quarter: 2010Q4

REPORT INFORMATION
  Report Type: 
  Country: None (occurrence: None)
  Receive Date: 20101222
  Receipt Date: 20101216
  Transmission Date: 20110411
  Serious: Yes (Hospitalization)
  Sender: FDA-Public Use
  Company Number: US-AMGEN-USASP2010009830

PATIENT

DRUGS (21)
  1. NEULASTA [Suspect]
     Indication: NEUTROPENIA
  2. ZOFRAN [Concomitant]
  3. PROCHLORPERAZINE [Concomitant]
  4. GLIPIZIDE [Concomitant]
  5. LISINOPRIL [Concomitant]
  6. FINASTERIDE [Concomitant]
  7. SIMVASTATIN [Concomitant]
  8. MECLIZINE                          /00072801/ [Concomitant]
  9. CARBIDOPA [Concomitant]
  10. MEGACE [Concomitant]
  11. TAMSULOSIN [Concomitant]
     Dosage: UNK
  12. VIAGRA [Concomitant]
     Dosage: UNK
  13. CITALOPRAM [Concomitant]
  14. OMEPRAZOLE [Concomitant]
  15. NIASPAN [Concomitant]
  16. LEVODOPA [Concomitant]
  17. METOPROLOL [Concomitant]
  18. ASPIRIN [Concomitant]
     Dosage: UNK
  19. OXALIPLATIN [Concomitant]
  20. MULTIVITAMIN                       /00097801/ [Concomitant]
  21. TRIMETREXATE [Concomitant]

REACTIONS (2)
  - URINARY RETENTION [None]
  - WHITE BLOOD CELL COUNT INCREASED [None]
